FAERS Safety Report 13214038 (Version 1)
Quarter: 2017Q1

REPORT INFORMATION
  Report Type: Spontaneous
  Country: US (occurrence: US)
  Receive Date: 20170209
  Receipt Date: 20170209
  Transmission Date: 20170428
  Serious: No
  Sender: FDA-Public Use
  Company Number: US-ALLERGAN-1667496US

PATIENT
  Sex: Female

DRUGS (4)
  1. BOTOX COSMETIC [Suspect]
     Active Substance: ONABOTULINUMTOXINA
     Indication: SKIN WRINKLING
     Dosage: 10 UNITS, SINGLE
     Route: 030
     Dates: start: 20160722, end: 20160722
  2. BOTOX COSMETIC [Suspect]
     Active Substance: ONABOTULINUMTOXINA
     Indication: SKIN WRINKLING
  3. CASTOR OIL. [Concomitant]
     Active Substance: CASTOR OIL
     Route: 048
  4. ARMOUR THYROID [Concomitant]
     Active Substance: THYROID, PORCINE
     Indication: HYPOTHYROIDISM
     Dosage: 90 MG, QD
     Route: 048

REACTIONS (9)
  - Stress [Unknown]
  - Hepatic pain [Unknown]
  - Neck pain [Recovering/Resolving]
  - Dry eye [Recovering/Resolving]
  - Back pain [Recovering/Resolving]
  - Dysstasia [Recovered/Resolved]
  - Dry mouth [Recovering/Resolving]
  - Pyrexia [Recovered/Resolved]
  - Asthenia [Recovered/Resolved]
